FAERS Safety Report 4656579-8 (Version None)
Quarter: 2005Q2

REPORT INFORMATION
  Report Type: 
  Country: None (occurrence: None)
  Receive Date: 20050506
  Receipt Date: 20050427
  Transmission Date: 20051028
  Serious: Yes (Death)
  Sender: FDA-Public Use
  Company Number: FR-2004-036878

PATIENT
  Age: 73 Year
  Sex: Male

DRUGS (1)
  1. REFLUDAN [Suspect]
     Indication: PULMONARY EMBOLISM
     Dosage: INTRAVENOUS
     Route: 042
     Dates: end: 20041211

REACTIONS (1)
  - RESPIRATORY FAILURE [None]
